FAERS Safety Report 6059669-0 (Version None)
Quarter: 2009Q1

REPORT INFORMATION
  Report Type: 
  Country: None (occurrence: None)
  Receive Date: 20090130
  Receipt Date: 20090119
  Transmission Date: 20090719
  Serious: Yes (Hospitalization, Other)
  Sender: FDA-Public Use
  Company Number: GB-ROCHE-599262

PATIENT
  Sex: Male
  Weight: 146.1 kg

DRUGS (9)
  1. ORLISTAT [Suspect]
     Indication: OBESITY
     Route: 048
     Dates: start: 20080822
  2. LISINOPRIL [Concomitant]
     Route: 048
     Dates: start: 20050101
  3. PIOGLITAZONE [Concomitant]
     Route: 048
     Dates: start: 20060101
  4. AMLODIPINE [Concomitant]
     Route: 048
     Dates: start: 20060101
  5. FINASTERIDE [Concomitant]
     Route: 048
     Dates: start: 20081118
  6. METFORMIN [Concomitant]
     Route: 048
  7. ASPIRIN [Concomitant]
     Dosage: INDICATION REPORTED AS BLOOD.
     Route: 048
  8. IBRUFEN [Concomitant]
     Indication: PAIN
     Route: 048
  9. GLICLAZIDE [Concomitant]
     Dates: start: 20081118

REACTIONS (2)
  - RENAL FAILURE [None]
  - RENAL FAILURE ACUTE [None]
